FAERS Safety Report 7296734-4 (Version None)
Quarter: 2011Q1

REPORT INFORMATION
  Report Type: 
  Country: None (occurrence: None)
  Receive Date: 20110216
  Receipt Date: 20110214
  Transmission Date: 20110831
  Serious: Yes (Congenital Anomaly)
  Sender: FDA-Public Use
  Company Number: A0687247A

PATIENT
  Sex: Male
  Weight: 3.4 kg

DRUGS (6)
  1. ZANTAC [Concomitant]
     Route: 064
  2. PAXIL [Suspect]
     Indication: ANXIETY
     Dosage: 20MG PER DAY
     Route: 064
     Dates: start: 20000101
  3. PRENATAL VITAMINS [Concomitant]
     Route: 064
  4. PAROXETINE HYDROCHLORIDE [Suspect]
     Indication: ANXIETY
     Dosage: 10MG PER DAY
     Route: 064
     Dates: start: 20040101, end: 20040101
  5. PAXIL CR [Suspect]
     Indication: ANXIETY
     Dosage: 25MG PER DAY
     Route: 064
     Dates: start: 20030101
  6. IMODIUM [Concomitant]
     Route: 064

REACTIONS (9)
  - HEART DISEASE CONGENITAL [None]
  - CARDIAC DISORDER [None]
  - ATRIAL SEPTAL DEFECT [None]
  - SINUS TACHYCARDIA [None]
  - RIGHT VENTRICULAR HYPERTROPHY [None]
  - DRUG EXPOSURE DURING PREGNANCY [None]
  - CARDIAC MURMUR [None]
  - VENTRICULAR SEPTAL DEFECT [None]
  - PULMONARY VALVE STENOSIS [None]
